FAERS Safety Report 8150170-7 (Version None)
Quarter: 2012Q1

REPORT INFORMATION
  Report Type: 
  Country: None (occurrence: None)
  Receive Date: 20120220
  Receipt Date: 20120214
  Transmission Date: 20120608
  Serious: No
  Sender: FDA-Public Use
  Company Number: US-PFIZER INC-2012014732

PATIENT
  Sex: Female
  Weight: 110.66 kg

DRUGS (11)
  1. SYNTHROID [Concomitant]
     Dosage: 75 UG, 1X/DAY
  2. SERTRALINE [Concomitant]
     Dosage: 100 MG, 1X/DAY
  3. CARVEDILOL [Concomitant]
     Indication: HYPERTENSION
     Dosage: UNK UNK
  4. AMLODIPINE [Concomitant]
     Dosage: UNK UNK
  5. SIMVASTATIN [Concomitant]
     Dosage: 40 MG, 1X/DAY
  6. PLAVIX [Concomitant]
     Dosage: UNK
  7. HYDROCHLOROTHIAZIDE [Concomitant]
     Dosage: 25 MG, 1X/DAY
  8. VERAPAMIL [Concomitant]
     Dosage: 300 MG, QHS
  9. NITROSTAT [Suspect]
     Indication: CHEST DISCOMFORT
     Dosage: 0.4 MG, AS NEEDED
     Route: 060
     Dates: start: 20111101
  10. NITROSTAT [Suspect]
     Indication: PALPITATIONS
  11. METFORMIN [Concomitant]
     Indication: DIABETES MELLITUS
     Dosage: 1000 MG, 2X/DAY

REACTIONS (5)
  - NAUSEA [None]
  - PARAESTHESIA ORAL [None]
  - HYPOAESTHESIA ORAL [None]
  - DIZZINESS [None]
  - DRUG EFFECT DELAYED [None]
